FAERS Safety Report 5908886-6 (Version None)
Quarter: 2008Q4

REPORT INFORMATION
  Report Type: 
  Country: None (occurrence: None)
  Receive Date: 20081001
  Receipt Date: 20080922
  Transmission Date: 20090506
  Serious: Yes (Hospitalization)
  Sender: FDA-Public Use
  Company Number: FACT0600222

PATIENT
  Age: 37 Year
  Sex: Male
  Weight: 106.6 kg

DRUGS (5)
  1. FACTIVE [Suspect]
     Indication: BRONCHITIS
     Dosage: 320 MG, QD, ORAL
     Route: 048
     Dates: start: 20060327, end: 20060401
  2. FACTIVE [Suspect]
     Indication: SINUSITIS
     Dosage: 320 MG, QD, ORAL
     Route: 048
     Dates: start: 20060327, end: 20060401
  3. NEXIUM [Suspect]
     Indication: GASTROOESOPHAGEAL REFLUX DISEASE
     Dosage: 40 MG, ORAL
     Route: 048
     Dates: start: 20060327
  4. DEXAMETHASONE TAB [Suspect]
     Indication: BRONCHITIS
     Dosage: 4 MG
     Dates: start: 20060327
  5. DEPO-MEDROL [Suspect]
     Indication: CHEST DISCOMFORT
     Dosage: 40 MG
     Dates: start: 20060327

REACTIONS (8)
  - DRUG ERUPTION [None]
  - DRUG INEFFECTIVE [None]
  - DRUG INTERACTION [None]
  - MOUTH HAEMORRHAGE [None]
  - OEDEMA PERIPHERAL [None]
  - OFF LABEL USE [None]
  - OROPHARYNGEAL PAIN [None]
  - RASH MORBILLIFORM [None]
